FAERS Safety Report 24604309 (Version 1)
Quarter: 2024Q4

REPORT INFORMATION
  Report Type: Spontaneous
  Country: US (occurrence: US)
  Receive Date: 20241111
  Receipt Date: 20241111
  Transmission Date: 20250114
  Serious: Yes (Death, Hospitalization, Other)
  Sender: SANOFI AVENTIS
  Company Number: US-SA-2024SA319033

PATIENT
  Age: 97 Year
  Sex: Male

DRUGS (2)
  1. DUPIXENT [Suspect]
     Active Substance: DUPILUMAB
     Indication: Dermatitis
     Dosage: UNK
     Dates: start: 2023
  2. DUPIXENT [Suspect]
     Active Substance: DUPILUMAB
     Dosage: 300 MG QOW
     Route: 058
     Dates: start: 202311

REACTIONS (9)
  - Lung neoplasm malignant [Fatal]
  - Condition aggravated [Fatal]
  - Lymphadenopathy mediastinal [Unknown]
  - Non-small cell lung cancer [Unknown]
  - Prostate cancer [Unknown]
  - Bone lesion [Unknown]
  - Pulmonary mass [Unknown]
  - Pleural effusion [Unknown]
  - Product use in unapproved indication [Unknown]

NARRATIVE: CASE EVENT DATE: 20230101
